FAERS Safety Report 10007179 (Version 2)
Quarter: 2014Q2

REPORT INFORMATION
  Report Type: Spontaneous
  Country: US (occurrence: US)
  Receive Date: 20140313
  Receipt Date: 20140404
  Transmission Date: 20141212
  Serious: No
  Sender: FDA-Public Use
  Company Number: US-PFIZER INC-2014072004

PATIENT
  Age: 44 Year
  Sex: Female
  Weight: 62.1 kg

DRUGS (3)
  1. PRISTIQ [Suspect]
     Indication: DEPRESSION
     Dosage: 50 MG, DAILY
  2. PRISTIQ [Suspect]
     Indication: ANXIETY
  3. BUPROPION HYDROCHLORIDE [Concomitant]
     Dosage: UNK

REACTIONS (2)
  - Paraesthesia [Unknown]
  - Malaise [Unknown]
